FAERS Safety Report 21700213 (Version 1)
Quarter: 2022Q4

REPORT INFORMATION
  Report Type: Spontaneous
  Country: AT (occurrence: AT)
  Receive Date: 20221208
  Receipt Date: 20221208
  Transmission Date: 20230112
  Serious: Yes (Hospitalization, Other)
  Sender: FDA-Public Use
  Company Number: AT-BAUSCH-BL-2022-023166

PATIENT
  Age: 78 Year
  Sex: Female

DRUGS (9)
  1. DOXORUBICIN [Suspect]
     Active Substance: DOXORUBICIN
     Indication: Anaplastic large-cell lymphoma
     Dosage: FIRST CYCLE
     Route: 065
     Dates: start: 201708
  2. DOXORUBICIN [Suspect]
     Active Substance: DOXORUBICIN
     Dosage: EIGHTH CHOP CYCLE;
     Route: 065
  3. METRONIDAZOLE [Suspect]
     Active Substance: METRONIDAZOLE
     Indication: Anaplastic large-cell lymphoma
     Dosage: UNK, STRENGTH 1 PERCENT
     Route: 065
  4. PREDNISONE [Suspect]
     Active Substance: PREDNISONE
     Indication: Anaplastic large-cell lymphoma
     Dosage: FIRST CYCLE
     Route: 065
     Dates: start: 201708
  5. PREDNISONE [Suspect]
     Active Substance: PREDNISONE
     Dosage: EIGHTH CHOP CYCLE;
     Route: 065
  6. VINCRISTINE SULFATE [Suspect]
     Active Substance: VINCRISTINE SULFATE
     Indication: Anaplastic large-cell lymphoma
     Dosage: FIRST CYCLE
     Route: 065
     Dates: start: 201708
  7. VINCRISTINE SULFATE [Suspect]
     Active Substance: VINCRISTINE SULFATE
     Dosage: EIGHTH CHOP CYCLE
     Route: 065
  8. CYCLOPHOSPHAMIDE [Suspect]
     Active Substance: CYCLOPHOSPHAMIDE
     Indication: Anaplastic large-cell lymphoma
     Dosage: FIRST CYCLE
     Route: 065
     Dates: start: 201708
  9. CYCLOPHOSPHAMIDE [Suspect]
     Active Substance: CYCLOPHOSPHAMIDE
     Dosage: EIGHTH CHOP CYCLE
     Route: 065

REACTIONS (2)
  - Disease progression [Unknown]
  - Clostridium colitis [Unknown]

NARRATIVE: CASE EVENT DATE: 20170801
